FAERS Safety Report 9558034 (Version 1)
Quarter: 2013Q3

REPORT INFORMATION
  Report Type: Spontaneous
  Country: US (occurrence: US)
  Receive Date: 20130926
  Receipt Date: 20130926
  Transmission Date: 20140515
  Serious: No
  Sender: FDA-Public Use
  Company Number: US-BIOGENIDEC-2013BI038790

PATIENT
  Age: 55 Year
  Sex: Female

DRUGS (8)
  1. TECFIDERA [Suspect]
     Indication: MULTIPLE SCLEROSIS
     Route: 048
     Dates: start: 20130419
  2. BACLOFEN [Concomitant]
     Route: 048
  3. LYRICA [Concomitant]
     Route: 048
  4. GABAPENTIN [Concomitant]
     Route: 048
  5. LAMICTAL [Concomitant]
  6. REQUIPT [Concomitant]
  7. VENLAFAXIN [Concomitant]
     Route: 048
  8. SYNTHROID [Concomitant]
     Route: 048

REACTIONS (3)
  - Flushing [Not Recovered/Not Resolved]
  - Nausea [Not Recovered/Not Resolved]
  - Abdominal pain upper [Not Recovered/Not Resolved]
